FAERS Safety Report 22593740 (Version 1)
Quarter: 2023Q2

REPORT INFORMATION
  Report Type: Spontaneous
  Country: IE (occurrence: IE)
  Receive Date: 20230613
  Receipt Date: 20230613
  Transmission Date: 20230722
  Serious: Yes (Hospitalization, Other)
  Sender: FDA-Public Use
  Company Number: IE-Waymade Healthcare PLC-WAY20230400360

PATIENT
  Age: 2 Decade
  Sex: Female

DRUGS (8)
  1. MONTELUKAST [Suspect]
     Active Substance: MONTELUKAST SODIUM
     Indication: Product used for unknown indication
  2. LAMOTRIGINE [Suspect]
     Active Substance: LAMOTRIGINE
     Indication: Product used for unknown indication
     Dosage: NOCTE
  3. BUDESONIDE\FORMOTEROL FUMARATE [Suspect]
     Active Substance: BUDESONIDE\FORMOTEROL FUMARATE
     Indication: Product used for unknown indication
  4. ESTROGENS\PROGESTERONE [Suspect]
     Active Substance: ESTROGENS\PROGESTERONE
     Indication: Product used for unknown indication
  5. ZONISAMIDE [Suspect]
     Active Substance: ZONISAMIDE
     Indication: Product used for unknown indication
  6. TERBUTALINE [Suspect]
     Active Substance: TERBUTALINE
     Indication: Product used for unknown indication
  7. ZONISAMIDE [Suspect]
     Active Substance: ZONISAMIDE
     Indication: Product used for unknown indication
     Dosage: WEANING BY 50 MG EVERY DAY OVER 7 DAYS TO STOP
  8. ZONISAMIDE [Suspect]
     Active Substance: ZONISAMIDE
     Indication: Product used for unknown indication

REACTIONS (2)
  - Microcytic anaemia [Recovering/Resolving]
  - Metabolic acidosis [Recovering/Resolving]
